FAERS Safety Report 7698977-4 (Version None)
Quarter: 2011Q3

REPORT INFORMATION
  Report Type: 
  Country: None (occurrence: None)
  Receive Date: 20110819
  Receipt Date: 20110721
  Transmission Date: 20111222
  Serious: Yes (Other)
  Sender: FDA-Public Use
  Company Number: US-BAYER-2011-064336

PATIENT

DRUGS (1)
  1. ALEVE (CAPLET) [Suspect]
     Indication: HEADACHE
     Dosage: 2 DF, ONCE
     Route: 048
     Dates: start: 20110720, end: 20110720

REACTIONS (6)
  - PHARYNGEAL OEDEMA [None]
  - SPEECH DISORDER [None]
  - THROAT IRRITATION [None]
  - HYPERSENSITIVITY [None]
  - DYSPNOEA [None]
  - DYSPHAGIA [None]
